FAERS Safety Report 4690974-6 (Version None)
Quarter: 2005Q2

REPORT INFORMATION
  Report Type: 
  Country: None (occurrence: None)
  Receive Date: 20050613
  Receipt Date: 20050531
  Transmission Date: 20051028
  Serious: Yes (Death)
  Sender: FDA-Public Use
  Company Number: 2005053287

PATIENT
  Sex: Female

DRUGS (3)
  1. LIPITOR [Suspect]
     Indication: ILL-DEFINED DISORDER
     Dosage: ORAL
     Route: 048
  2. INTERFERON ALFA (INTERFERON ALFA) [Suspect]
     Indication: ILL-DEFINED DISORDER
     Dosage: ORAL
     Route: 048
  3. EZETROL (EZETIMIBE) [Concomitant]

REACTIONS (6)
  - BLOOD CREATINE PHOSPHOKINASE INCREASED [None]
  - HYPERTRIGLYCERIDAEMIA [None]
  - LIPIDS ABNORMAL [None]
  - PANCREATITIS [None]
  - SEPSIS [None]
  - TRANSAMINASES INCREASED [None]
